FAERS Safety Report 9686308 (Version 2)
Quarter: 2013Q4

REPORT INFORMATION
  Report Type: Report from Study
  Country: NO (occurrence: NO)
  Receive Date: 20131113
  Receipt Date: 20131113
  Transmission Date: 20140711
  Serious: Yes (Death, Hospitalization, Other)
  Sender: FDA-Public Use
  Company Number: NO-ABBVIE-11P-122-0728868-00

PATIENT
  Age: 49 Year
  Sex: Male

DRUGS (4)
  1. HUMIRA 40 MG/ 0.8 ML PRE-FILLED SYRINGE [Suspect]
     Indication: CROHN^S DISEASE
     Dosage: WEEK 0
     Route: 058
     Dates: start: 201004
  2. HUMIRA 40 MG/ 0.8 ML PRE-FILLED SYRINGE [Suspect]
     Dosage: WEEK 2
  3. HUMIRA 40 MG/ 0.8 ML PRE-FILLED SYRINGE [Suspect]
     Dosage: WEEK 4: 40MG. THEN MAINTENANCE DOSE WAS 40 MG EVERY OTHER WEEK
  4. IMUREL [Concomitant]
     Indication: PRODUCT USED FOR UNKNOWN INDICATION

REACTIONS (11)
  - Condition aggravated [Unknown]
  - Disseminated tuberculosis [Fatal]
  - Lymph node tuberculosis [Fatal]
  - Extrapulmonary tuberculosis [Fatal]
  - Laziness [Unknown]
  - C-reactive protein increased [Unknown]
  - Liver function test abnormal [Unknown]
  - Renal function test abnormal [Unknown]
  - Fatigue [Unknown]
  - Fistula discharge [Recovering/Resolving]
  - Weight increased [Unknown]
